FAERS Safety Report 18933454 (Version 1)
Quarter: 2021Q1

REPORT INFORMATION
  Report Type: Spontaneous
  Country: BR (occurrence: BR)
  Receive Date: 20210224
  Receipt Date: 20210224
  Transmission Date: 20210420
  Serious: Yes (Other)
  Sender: FDA-Public Use
  Company Number: BR-MERZ PHARMACEUTICALS GMBH-20-04531

PATIENT
  Sex: Female

DRUGS (4)
  1. HYALURONIC ACID [Concomitant]
     Active Substance: HYALURONIC ACID
     Indication: LIP COSMETIC PROCEDURE
  2. BELOTERO BALANCE LIDOCAINE [Concomitant]
     Indication: SKIN COSMETIC PROCEDURE
     Dates: start: 20181215, end: 20181215
  3. BELOTERO BALANCE LIDOCAINE [Concomitant]
     Indication: SKIN COSMETIC PROCEDURE
     Dates: start: 20181215, end: 20181215
  4. XEOMIN [Suspect]
     Active Substance: INCOBOTULINUMTOXINA
     Indication: SKIN COSMETIC PROCEDURE

REACTIONS (1)
  - Injection site necrosis [Unknown]
